FAERS Safety Report 12236945 (Version 2)
Quarter: 2016Q2

REPORT INFORMATION
  Report Type: Not Available
  Country: FR (occurrence: FR)
  Receive Date: 20160405
  Receipt Date: 20160427
  Transmission Date: 20160815
  Serious: Yes (Hospitalization)
  Sender: FDA-Public Use
  Company Number: FR-BEH-2016060886

PATIENT
  Age: 68 Year
  Sex: Male

DRUGS (10)
  1. KARDEGIC [Concomitant]
     Active Substance: ASPIRIN LYSINE
  2. ALLOPURINOL. [Concomitant]
     Active Substance: ALLOPURINOL
  3. KESTIN [Concomitant]
     Active Substance: EBASTINE
  4. LASILIX [Concomitant]
     Active Substance: FUROSEMIDE
  5. NEBIVOLOL. [Concomitant]
     Active Substance: NEBIVOLOL
  6. AMLODIPINE [Concomitant]
     Active Substance: AMLODIPINE BESYLATE
  7. DOLIPRANE [Concomitant]
     Active Substance: ACETAMINOPHEN
  8. OMEPRAZOLE. [Concomitant]
     Active Substance: OMEPRAZOLE
  9. PRIVIGEN [Suspect]
     Active Substance: HUMAN IMMUNOGLOBULIN G
     Indication: POLYNEUROPATHY
     Dosage: 100  MG/ML, SOLUTION FOR INFUSION
     Route: 042
     Dates: start: 20160208, end: 20160212
  10. VESICARE [Concomitant]
     Active Substance: SOLIFENACIN SUCCINATE

REACTIONS (3)
  - Eczema [Recovering/Resolving]
  - Face oedema [Recovered/Resolved]
  - Rash pruritic [Recovering/Resolving]

NARRATIVE: CASE EVENT DATE: 20160214
